FAERS Safety Report 8062904-0 (Version None)
Quarter: 2012Q1

REPORT INFORMATION
  Report Type: 
  Country: None (occurrence: None)
  Receive Date: 20120123
  Receipt Date: 20120123
  Transmission Date: 20120608
  Serious: Yes (Other)
  Sender: FDA-Public Use
  Company Number: None

PATIENT
  Age: 68 Year
  Sex: Male
  Weight: 97.975 kg

DRUGS (2)
  1. DOCETAXEL [Suspect]
     Indication: NON-SMALL CELL LUNG CANCER
     Dosage: 80MG
     Route: 041
     Dates: start: 20110915, end: 20110915
  2. DOCETAXEL [Concomitant]
     Dosage: 70MG
     Route: 041

REACTIONS (4)
  - CELLULITIS [None]
  - INFUSION SITE PAIN [None]
  - SKIN EXFOLIATION [None]
  - INFUSION SITE ERYTHEMA [None]
